FAERS Safety Report 11179208 (Version 2)
Quarter: 2015Q2

REPORT INFORMATION
  Report Type: Report from Study
  Country: JP (occurrence: JP)
  Receive Date: 20150610
  Receipt Date: 20150624
  Transmission Date: 20150821
  Serious: Yes (Hospitalization)
  Sender: FDA-Public Use
  Company Number: JP-009507513-1305JPN006053

PATIENT
  Age: 33 Year
  Sex: Female
  Weight: 41 kg

DRUGS (5)
  1. FOLLITROPIN ALFA [Suspect]
     Active Substance: FOLLITROPIN
     Indication: IN VITRO FERTILISATION
     Dosage: 225 UNDER 1000 UNIT, QD
     Route: 058
     Dates: start: 20100628, end: 20100701
  2. PROGYNOVA [Concomitant]
     Active Substance: ESTRADIOL VALERATE
     Indication: IN VITRO FERTILISATION
     Dosage: DAILY DOSE UNKNOWN; FORMULATION POR
     Route: 048
     Dates: start: 20100907
  3. GANIRELIX ACETATE. [Suspect]
     Active Substance: GANIRELIX ACETATE
     Indication: PREVENTION OF PREMATURE OVULATION
     Dosage: 0.25 MG, QD, STRENGTH: 0.25 MG
     Route: 058
     Dates: start: 20100706, end: 20100706
  4. MENOTROPINS [Suspect]
     Active Substance: MENOTROPINS
     Indication: IN VITRO FERTILISATION
     Dosage: 300 UNDER1000 UNIT, QD
     Route: 030
     Dates: start: 20100702, end: 20100706
  5. GONADOTROPIN, CHORIONIC [Concomitant]
     Active Substance: CHORIOGONADOTROPIN ALFA
     Indication: OVULATION INDUCTION
     Dosage: 5000 (THOUSAND-MILLION UNIT), QD
     Route: 051
     Dates: start: 20100707, end: 20100707

REACTIONS (3)
  - Ovarian hyperstimulation syndrome [Recovered/Resolved]
  - Breech presentation [Recovered/Resolved]
  - Maternal exposure before pregnancy [Recovered/Resolved]

NARRATIVE: CASE EVENT DATE: 20100707
